FAERS Safety Report 4638110-6 (Version None)
Quarter: 2005Q2

REPORT INFORMATION
  Report Type: 
  Country: None (occurrence: None)
  Receive Date: 20050415
  Receipt Date: 20050330
  Transmission Date: 20051028
  Serious: Yes (Hospitalization, Other)
  Sender: FDA-Public Use
  Company Number: MED000067

PATIENT
  Age: 62 Year
  Sex: Male

DRUGS (1)
  1. MILRINONE LACTATE [Suspect]
     Indication: CORONARY ARTERY SURGERY
     Dosage: 200 UG INTRAVENOUS
     Route: 042
     Dates: start: 20050327, end: 20050327

REACTIONS (1)
  - DRUG INEFFECTIVE [None]
